FAERS Safety Report 4559506-7 (Version None)
Quarter: 2005Q1

REPORT INFORMATION
  Report Type: 
  Country: None (occurrence: None)
  Receive Date: 20050124
  Receipt Date: 20001130
  Transmission Date: 20050727
  Serious: Yes (Hospitalization)
  Sender: FDA-Public Use
  Company Number: US-GLAXOSMITHKLINE-A0133165A

PATIENT
  Age: 63 Year
  Sex: Female
  Weight: 63.2 kg

DRUGS (4)
  1. LOTRONEX [Suspect]
     Indication: IRRITABLE BOWEL SYNDROME
     Dosage: 1MG TWICE PER DAY
     Route: 048
     Dates: start: 20000601, end: 20000917
  2. IBUPROFEN [Concomitant]
     Indication: BACK DISORDER
     Route: 048
  3. XANAX [Concomitant]
  4. ULTRAM [Concomitant]

REACTIONS (32)
  - ABDOMINAL PAIN LOWER [None]
  - ASCITES [None]
  - ASTHENIA [None]
  - BACK PAIN [None]
  - BLOOD PRESSURE DECREASED [None]
  - BLOOD UREA DECREASED [None]
  - CHRONIC OBSTRUCTIVE PULMONARY DISEASE [None]
  - COLITIS ISCHAEMIC [None]
  - CONSTIPATION [None]
  - DIARRHOEA [None]
  - DIVERTICULUM [None]
  - DYSPEPSIA [None]
  - FAECAL OCCULT BLOOD POSITIVE [None]
  - FEELING ABNORMAL [None]
  - GASTRITIS [None]
  - HIATUS HERNIA [None]
  - ILEUS [None]
  - INTERVERTEBRAL DISC DEGENERATION [None]
  - LEUKOCYTOSIS [None]
  - LUNG INFILTRATION [None]
  - LYMPHOCYTE COUNT DECREASED [None]
  - MEAN CELL HAEMOGLOBIN INCREASED [None]
  - MONOCYTE COUNT INCREASED [None]
  - NAUSEA [None]
  - NEPHROLITHIASIS [None]
  - NEUTROPHIL COUNT INCREASED [None]
  - OSTEOARTHRITIS [None]
  - PAIN [None]
  - POLYP COLORECTAL [None]
  - RECTAL HAEMORRHAGE [None]
  - RENAL CYST [None]
  - VOMITING [None]
